FAERS Safety Report 8290507-1 (Version None)
Quarter: 2012Q2

REPORT INFORMATION
  Report Type: 
  Country: None (occurrence: None)
  Receive Date: 20120412
  Receipt Date: 20120412
  Transmission Date: 20120825
  Serious: No
  Sender: FDA-Public Use
  Company Number: None

PATIENT
  Sex: Female
  Weight: 51.7101 kg

DRUGS (1)
  1. ESTRACE [Suspect]
     Indication: INFERTILITY
     Dosage: 2 MG PO TID
     Route: 048
     Dates: start: 20120226

REACTIONS (2)
  - UTERINE DISORDER [None]
  - PRODUCT SUBSTITUTION ISSUE [None]
